FAERS Safety Report 22034754 (Version 2)
Quarter: 2024Q2

REPORT INFORMATION
  Report Type: Spontaneous
  Country: KR (occurrence: KR)
  Receive Date: 20230224
  Receipt Date: 20240503
  Transmission Date: 20240716
  Serious: Yes (Other)
  Sender: FDA-Public Use
  Company Number: KR-BAYER-2023A019724

PATIENT
  Age: 60 Year
  Sex: Female

DRUGS (1)
  1. ANGELIQ [Suspect]
     Active Substance: DROSPIRENONE\ESTRADIOL
     Dosage: UNK
     Route: 048
     Dates: start: 2022

REACTIONS (7)
  - Postmenopausal haemorrhage [None]
  - Diabetes mellitus [None]
  - Vaginal haemorrhage [None]
  - Hyperlipidaemia [None]
  - Hepatic enzyme increased [None]
  - Inappropriate schedule of product administration [None]
  - Dizziness [None]

NARRATIVE: CASE EVENT DATE: 20230117
